FAERS Safety Report 9953662 (Version 1)
Quarter: 2014Q1

REPORT INFORMATION
  Report Type: Spontaneous
  Country: US (occurrence: US)
  Receive Date: 20140304
  Receipt Date: 20140304
  Transmission Date: 20141002
  Serious: No
  Sender: FDA-Public Use
  Company Number: US-AMGEN-USASP2013068148

PATIENT
  Age: 44 Year
  Sex: Female

DRUGS (4)
  1. ENBREL [Suspect]
     Indication: PSORIATIC ARTHROPATHY
     Dosage: UNK
     Route: 065
  2. ENBREL [Suspect]
     Indication: UVEITIS
  3. HUMIRA [Concomitant]
     Dosage: UNK
  4. VITAMIN D                          /00107901/ [Concomitant]
     Dosage: UNK

REACTIONS (1)
  - Drug ineffective [Unknown]
